FAERS Safety Report 10276765 (Version 1)
Quarter: 2014Q3

REPORT INFORMATION
  Report Type: Spontaneous
  Country: CN (occurrence: None)
  Receive Date: 20140701
  Receipt Date: 20140701
  Transmission Date: 20150326
  Serious: Yes (Hospitalization)
  Sender: FDA-Public Use
  Company Number: 2014AMD00015

PATIENT
  Age: 10 Year
  Sex: Male
  Weight: 34.9 kg

DRUGS (1)
  1. ALBENDAZOLE TABLETS (ALBENDAZOLE) TABLET [Suspect]
     Active Substance: ALBENDAZOLE
     Indication: HELMINTHIC INFECTION
     Route: 048
     Dates: start: 20120903, end: 20120903

REACTIONS (5)
  - Chills [None]
  - Palpitations [None]
  - Coma [None]
  - Pyrexia [None]
  - Confusional state [None]

NARRATIVE: CASE EVENT DATE: 20120903
